FAERS Safety Report 7775934-0 (Version None)
Quarter: 2011Q3

REPORT INFORMATION
  Report Type: 
  Country: None (occurrence: None)
  Receive Date: 20110923
  Receipt Date: 20110919
  Transmission Date: 20111222
  Serious: Yes (Other)
  Sender: FDA-Public Use
  Company Number: HK-GENENTECH-324652

PATIENT
  Age: 58 Year
  Sex: Male

DRUGS (5)
  1. VINBLASTINE SULFATE [Suspect]
     Indication: HODGKIN'S DISEASE
     Dosage: UNK
     Route: 065
  2. ADRIAMYCIN PFS [Suspect]
     Indication: HODGKIN'S DISEASE
     Dosage: UNK
     Route: 065
  3. RITUXIMAB [Suspect]
     Indication: HODGKIN'S DISEASE
     Dosage: UNK
     Route: 065
  4. BLEOMYCIN SULFATE [Suspect]
     Indication: HODGKIN'S DISEASE
     Dosage: UNK
     Route: 065
  5. DACARBAZINE [Suspect]
     Indication: HODGKIN'S DISEASE
     Dosage: UNK
     Route: 065

REACTIONS (3)
  - CONVULSION [None]
  - CONFUSIONAL STATE [None]
  - SEPSIS [None]
